FAERS Safety Report 25050706 (Version 1)
Quarter: 2025Q1

REPORT INFORMATION
  Report Type: Spontaneous
  Country: CN (occurrence: CN)
  Receive Date: 20250307
  Receipt Date: 20250307
  Transmission Date: 20250409
  Serious: Yes (Hospitalization)
  Sender: DAIICHI
  Company Number: CN-DSJP-DS-2025-126774-CN

PATIENT
  Age: 56 Year
  Sex: Female

DRUGS (2)
  1. TRASTUZUMAB DERUXTECAN [Suspect]
     Active Substance: TRASTUZUMAB DERUXTECAN
     Indication: Neoplasm
     Dosage: 5.4 MG/KG, QD (291.6 MG)
     Route: 041
     Dates: start: 20250202, end: 20250202
  2. DEXTROSE [Concomitant]
     Active Substance: DEXTROSE MONOHYDRATE
     Indication: Vehicle solution use
     Dosage: 100 ML, QD
     Route: 041
     Dates: start: 20250202, end: 20250202

REACTIONS (2)
  - Gastroenteritis [Recovering/Resolving]
  - Productive cough [Recovering/Resolving]

NARRATIVE: CASE EVENT DATE: 20250210
